FAERS Safety Report 5160199-9 (Version None)
Quarter: 2006Q4

REPORT INFORMATION
  Report Type: 
  Country: None (occurrence: None)
  Receive Date: 20061129
  Receipt Date: 20061106
  Transmission Date: 20070319
  Serious: Yes (Hospitalization)
  Sender: FDA-Public Use
  Company Number: FR-BRISTOL-MYERS SQUIBB COMPANY-13570890

PATIENT
  Age: 91 Year
  Sex: Female

DRUGS (15)
  1. VASTEN [Suspect]
     Route: 048
     Dates: end: 20060927
  2. ALLOPURINOL [Suspect]
     Route: 048
     Dates: end: 20060927
  3. CORDARONE [Suspect]
     Route: 048
  4. PREVISCAN [Suspect]
     Route: 048
     Dates: end: 20060927
  5. IMODIUM [Concomitant]
     Route: 048
     Dates: start: 20060922, end: 20060927
  6. TIORFAN [Concomitant]
     Route: 048
     Dates: start: 20060922, end: 20060927
  7. LASIX [Concomitant]
  8. ACETAMINOPHEN [Concomitant]
  9. NEORECORMON [Concomitant]
  10. NPH INSULIN [Concomitant]
     Indication: DIABETES MELLITUS
     Dates: end: 20060927
  11. NOVORAPID [Concomitant]
     Indication: DIABETES MELLITUS
     Dates: end: 20060927
  12. LOPERAMIDE [Concomitant]
     Dates: start: 20060922
  13. ACETORPHAN [Concomitant]
     Dates: start: 20060922
  14. EPOETIN BETA [Concomitant]
  15. INSULIN ASPART [Concomitant]
     Indication: DIABETES MELLITUS
     Dates: end: 20060927

REACTIONS (1)
  - RECTAL HAEMORRHAGE [None]
